FAERS Safety Report 4512166-3 (Version None)
Quarter: 2004Q4

REPORT INFORMATION
  Report Type: 
  Country: None (occurrence: None)
  Receive Date: 20041129
  Receipt Date: 20041117
  Transmission Date: 20050328
  Serious: Yes (Hospitalization)
  Sender: FDA-Public Use
  Company Number: US-ROCHE-386727

PATIENT
  Age: 53 Year
  Sex: Female
  Weight: 52.2 kg

DRUGS (4)
  1. PEGASYS [Suspect]
     Route: 058
     Dates: start: 20040903, end: 20041103
  2. COPEGUS [Suspect]
     Dosage: REGIMEN REPORTED AS 3AM, 2PM.
     Route: 048
     Dates: start: 20040903, end: 20041103
  3. COUMADIN [Concomitant]
     Route: 048
     Dates: start: 19960615
  4. OXYCONTIN [Concomitant]
     Route: 065
     Dates: start: 20040415

REACTIONS (6)
  - DRUG INEFFECTIVE [None]
  - FATIGUE [None]
  - PLATELET COUNT DECREASED [None]
  - THROMBOSIS [None]
  - VASCULAR GRAFT OCCLUSION [None]
  - WHITE BLOOD CELL COUNT DECREASED [None]
